FAERS Safety Report 22395294 (Version 2)
Quarter: 2023Q2

REPORT INFORMATION
  Report Type: Report from Study
  Country: US (occurrence: US)
  Receive Date: 20230601
  Receipt Date: 20230627
  Transmission Date: 20230722
  Serious: Yes (Other)
  Sender: FDA-Public Use
  Company Number: US-BRISTOL-MYERS SQUIBB COMPANY-2023-076851

PATIENT
  Age: 73 Year
  Sex: Female

DRUGS (3)
  1. CAMZYOS [Suspect]
     Active Substance: MAVACAMTEN
     Indication: Hypertrophic cardiomyopathy
     Dosage: EVERY NIGHT
     Route: 048
  2. THERAFLU EXPRESSMAX DAYTIME SEVERE COLD AND COUGH [Concomitant]
     Active Substance: ACETAMINOPHEN\DEXTROMETHORPHAN HYDROBROMIDE\PHENYLEPHRINE HYDROCHLORIDE
     Indication: Product used for unknown indication
  3. THERAFLU EXPRESSMAX NIGHTTIME SEVERE COLD AND COUGH [Concomitant]
     Active Substance: ACETAMINOPHEN\DIPHENHYDRAMINE HYDROCHLORIDE\PHENYLEPHRINE HYDROCHLORIDE
     Indication: Product used for unknown indication

REACTIONS (7)
  - Atrial fibrillation [Recovering/Resolving]
  - Fatigue [Unknown]
  - Dyspnoea [Unknown]
  - Haemoglobin decreased [Unknown]
  - Gastric disorder [Unknown]
  - Constipation [Unknown]
  - Memory impairment [Unknown]

NARRATIVE: CASE EVENT DATE: 20230527
